FAERS Safety Report 18716354 (Version 1)
Quarter: 2021Q1

REPORT INFORMATION
  Report Type: Spontaneous
  Country: US (occurrence: US)
  Receive Date: 20210107
  Receipt Date: 20210107
  Transmission Date: 20210419
  Serious: No
  Sender: FDA-Public Use
  Company Number: None

PATIENT
  Age: 32 Year
  Sex: Female
  Weight: 57.6 kg

DRUGS (6)
  1. ADDERALL [Concomitant]
     Active Substance: AMPHETAMINE ASPARTATE\AMPHETAMINE SULFATE\DEXTROAMPHETAMINE SACCHARATE\DEXTROAMPHETAMINE SULFATE
  2. VITAMIN B COMPLEX [Concomitant]
     Active Substance: CYANOCOBALAMIN\DEXPANTHENOL\NIACINAMIDE\PYRIDOXINE HYDROCHLORIDE\RIBOFLAVIN 5^-PHOSPHATE SODIUM\THIAMINE HYDROCHLORIDE\VITAMIN B COMPLEX
  3. INOSITOL [Concomitant]
     Active Substance: INOSITOL
  4. VITAMIN C [Concomitant]
     Active Substance: ASCORBIC ACID
  5. DEXTROAMPHET SACCHARAT, AMPHET ASPARTATE, DEXTROAMPHET SULFATE AND AMPHET SULFAT [Suspect]
     Active Substance: AMPHETAMINE ASPARTATE\AMPHETAMINE SULFATE\DEXTROAMPHETAMINE SACCHARATE\DEXTROAMPHETAMINE SULFATE
     Indication: ATTENTION DEFICIT HYPERACTIVITY DISORDER
     Dosage: ?          QUANTITY:30 CAPSULE(S);?
     Route: 048
     Dates: start: 20201130, end: 20210106
  6. N?ACETYL CYSTEINE [Concomitant]
     Active Substance: ACETYLCYSTEINE

REACTIONS (11)
  - Depression [None]
  - Dizziness [None]
  - Anxiety [None]
  - Hyperhidrosis [None]
  - Sleep terror [None]
  - Middle insomnia [None]
  - Drug ineffective [None]
  - Disorientation [None]
  - Fatigue [None]
  - Chills [None]
  - Product substitution issue [None]

NARRATIVE: CASE EVENT DATE: 20201230
